FAERS Safety Report 4747533-6 (Version None)
Quarter: 2005Q3

REPORT INFORMATION
  Report Type: 
  Country: None (occurrence: None)
  Receive Date: 20050816
  Receipt Date: 20050728
  Transmission Date: 20060218
  Serious: Yes (Hospitalization)
  Sender: FDA-Public Use
  Company Number: ENT 2005-0108

PATIENT
  Sex: Male

DRUGS (1)
  1. COMTESS (ENTACAPONE) [Suspect]
     Dosage: TDS  ORAL
     Route: 048

REACTIONS (4)
  - DYSGEUSIA [None]
  - DYSPHAGIA [None]
  - FOREIGN BODY TRAUMA [None]
  - PHARMACEUTICAL PRODUCT COMPLAINT [None]
